FAERS Safety Report 4629463-3 (Version None)
Quarter: 2005Q2

REPORT INFORMATION
  Report Type: 
  Country: None (occurrence: None)
  Receive Date: 20050405
  Receipt Date: 20050324
  Transmission Date: 20051028
  Serious: Yes (Other)
  Sender: FDA-Public Use
  Company Number: 2005045179

PATIENT
  Age: 75 Year
  Sex: Male

DRUGS (4)
  1. SOLU-MEDROL [Suspect]
     Indication: PNEUMONIA
     Dosage: 1 GRAM, INTRAVENOUS
     Route: 042
     Dates: start: 20050309
  2. MEROPENEM (MEROPENEM) [Concomitant]
  3. CICLACILLIN (CICLACILLIN) [Concomitant]
  4. FOSFLUCONAZOLE (FOSFLUCONAZOLE) [Concomitant]

REACTIONS (3)
  - CARDIAC FAILURE CHRONIC [None]
  - CONDITION AGGRAVATED [None]
  - URINE OUTPUT DECREASED [None]
